FAERS Safety Report 6199441-4 (Version None)
Quarter: 2009Q2

REPORT INFORMATION
  Report Type: 
  Country: None (occurrence: None)
  Receive Date: 20090520
  Receipt Date: 20090520
  Transmission Date: 20091009
  Serious: Yes (Other)
  Sender: FDA-Public Use
  Company Number: None

PATIENT
  Sex: Female
  Weight: 68.0396 kg

DRUGS (4)
  1. TESTOSTERONE [Suspect]
     Indication: BLOOD TESTOSTERONE DECREASED
     Dosage: 5-10 MG. DAILY SUBLINGUAL
     Route: 060
     Dates: start: 20060920, end: 20080519
  2. TESTOSTERONE [Suspect]
     Indication: LIBIDO DECREASED
     Dosage: 5-10 MG. DAILY SUBLINGUAL
     Route: 060
     Dates: start: 20060920, end: 20080519
  3. TESTOSTERONE [Suspect]
     Indication: BLOOD TESTOSTERONE DECREASED
     Dosage: 5-10 MG. DAILY SUBLINGUAL
     Route: 060
     Dates: start: 20080520, end: 20090203
  4. TESTOSTERONE [Suspect]
     Indication: LIBIDO DECREASED
     Dosage: 5-10 MG. DAILY SUBLINGUAL
     Route: 060
     Dates: start: 20080520, end: 20090203

REACTIONS (7)
  - BLOOD TESTOSTERONE INCREASED [None]
  - CARDIAC DISORDER [None]
  - CEREBROVASCULAR ACCIDENT [None]
  - INCORRECT DOSE ADMINISTERED [None]
  - MIGRAINE [None]
  - PALPITATIONS [None]
  - PRODUCT DOSAGE FORM ISSUE [None]
